FAERS Safety Report 7495222-X (Version None)
Quarter: 2011Q2

REPORT INFORMATION
  Report Type: 
  Country: None (occurrence: None)
  Receive Date: 20110522
  Receipt Date: 20110509
  Transmission Date: 20111010
  Serious: No
  Sender: FDA-Public Use
  Company Number: US-ELI_LILLY_AND_COMPANY-US201103006508

PATIENT
  Sex: Female
  Weight: 65.76 kg

DRUGS (7)
  1. FORTEO [Suspect]
     Indication: OSTEOPOROSIS
     Dosage: 20 UG, QD
     Route: 058
     Dates: start: 20101206
  2. LIPITOR [Concomitant]
     Dosage: 10 MG, QD
  3. CENTRUM                            /00554501/ [Concomitant]
  4. VITAMIN D [Concomitant]
     Dosage: 1000 UG, QD
  5. OMEPRAZOLE [Concomitant]
     Dosage: 20 UG, QD
  6. CALCIUM CITRATE [Concomitant]
  7. NAPROXEN (ALEVE) [Concomitant]

REACTIONS (1)
  - NO ADVERSE EVENT [None]
